FAERS Safety Report 5006361-7 (Version None)
Quarter: 2006Q2

REPORT INFORMATION
  Report Type: 
  Country: None (occurrence: None)
  Receive Date: 20060519
  Receipt Date: 20060512
  Transmission Date: 20061013
  Serious: Yes (Hospitalization)
  Sender: FDA-Public Use
  Company Number: JP-JNJFOC-20060503566

PATIENT
  Age: 24 Year
  Sex: Female

DRUGS (6)
  1. CRAVIT [Suspect]
     Indication: PYREXIA
     Route: 048
     Dates: start: 20060205, end: 20060207
  2. PENTCILLIN [Suspect]
     Indication: PYREXIA
     Route: 042
     Dates: start: 20060205
  3. ACYCLOVIR [Suspect]
     Indication: PYREXIA
     Route: 065
     Dates: start: 20060205
  4. LOXOT [Suspect]
     Indication: PYREXIA
     Route: 048
     Dates: start: 20060205
  5. TROXSIN [Suspect]
     Indication: PYREXIA
     Route: 048
     Dates: start: 20060205
  6. PRIMPERAN TAB [Suspect]
     Indication: PYREXIA
     Route: 065
     Dates: start: 20060205

REACTIONS (3)
  - LIVER DISORDER [None]
  - LOSS OF CONSCIOUSNESS [None]
  - THROMBOCYTOPENIA [None]
